FAERS Safety Report 22592876 (Version 2)
Quarter: 2023Q2

REPORT INFORMATION
  Report Type: Spontaneous
  Country: US (occurrence: US)
  Receive Date: 20230613
  Receipt Date: 20230621
  Transmission Date: 20230721
  Serious: Yes (Life-Threatening, Hospitalization, Other)
  Sender: FDA-Public Use
  Company Number: None

PATIENT
  Age: 38 Year
  Sex: Male

DRUGS (4)
  1. EVEROLIMUS [Interacting]
     Active Substance: EVEROLIMUS
     Indication: Immunosuppressant drug therapy
     Dosage: UNK
     Route: 065
     Dates: start: 20201013, end: 20201101
  2. MYCOPHENOLATE MOFETIL [Interacting]
     Active Substance: MYCOPHENOLATE MOFETIL
     Indication: Immunosuppressant drug therapy
     Dosage: UNK
     Route: 065
     Dates: end: 20200906
  3. TACROLIMUS [Interacting]
     Active Substance: TACROLIMUS
     Indication: Immunosuppressant drug therapy
     Dosage: UNK
     Route: 065
  4. PREDNISONE [Concomitant]
     Active Substance: PREDNISONE
     Indication: Immunosuppressant drug therapy
     Dosage: UNK
     Route: 065

REACTIONS (12)
  - Weight decreased [Unknown]
  - Gastric ulcer perforation [Recovered/Resolved]
  - Oesophageal ulcer [Recovered/Resolved]
  - Drug interaction [Recovered/Resolved]
  - Gastrointestinal ulcer perforation [Recovered/Resolved]
  - Ileal ulcer [Recovered/Resolved]
  - Gastric ulcer haemorrhage, obstructive [Recovered/Resolved]
  - Large intestine perforation [Recovered/Resolved]
  - Melaena [Unknown]
  - Haemoglobin decreased [Unknown]
  - Gastrointestinal injury [Unknown]
  - Peritonitis [Recovered/Resolved]

NARRATIVE: CASE EVENT DATE: 20200901
